FAERS Safety Report 6697439-0 (Version None)
Quarter: 2010Q2

REPORT INFORMATION
  Report Type: 
  Country: None (occurrence: None)
  Receive Date: 20100426
  Receipt Date: 20100412
  Transmission Date: 20101027
  Serious: Yes (Hospitalization)
  Sender: FDA-Public Use
  Company Number: CA-MYLANLABS-2010S1004824

PATIENT
  Age: 74 Year
  Sex: Female
  Weight: 72.58 kg

DRUGS (5)
  1. MYLAN-WARFARIN [Suspect]
     Indication: THROMBOSIS PROPHYLAXIS
     Dosage: 1MG AS DIRECTED
     Route: 048
     Dates: start: 20100224
  2. METOPROLOL [Concomitant]
  3. METFORMIN HCL [Concomitant]
  4. CRESTOR [Concomitant]
  5. HYZAAR DS [Concomitant]
     Dosage: 100/25MG

REACTIONS (2)
  - HAEMORRHAGE [None]
  - INTERNATIONAL NORMALISED RATIO INCREASED [None]
